FAERS Safety Report 8385257 (Version 3)
Quarter: 2015Q1

REPORT INFORMATION
  Report Type: Report from Study
  Country: US (occurrence: US)
  Receive Date: 20120202
  Receipt Date: 20150226
  Transmission Date: 20150721
  Serious: Yes (Death, Life-Threatening, Other)
  Sender: FDA-Public Use
  Company Number: US-ROCHE-1035691

PATIENT
  Sex: Male
  Weight: 86 kg

DRUGS (5)
  1. TARCEVA [Concomitant]
     Active Substance: ERLOTINIB HYDROCHLORIDE
     Route: 065
  2. ARIXTRA [Concomitant]
     Active Substance: FONDAPARINUX SODIUM
     Indication: DEEP VEIN THROMBOSIS
  3. GEMZAR [Concomitant]
     Active Substance: GEMCITABINE HYDROCHLORIDE
  4. DIPHENHYDRAMINE [Concomitant]
     Active Substance: DIPHENHYDRAMINE
     Route: 042
  5. AVASTIN [Suspect]
     Active Substance: BEVACIZUMAB
     Indication: PANCREATIC CARCINOMA
     Route: 042
     Dates: start: 20070926

REACTIONS (6)
  - Deep vein thrombosis [Unknown]
  - Constipation [Unknown]
  - Off label use [Unknown]
  - Coagulopathy [Unknown]
  - Gastrointestinal haemorrhage [Fatal]
  - Hypophagia [Unknown]
